FAERS Safety Report 17012909 (Version 1)
Quarter: 2019Q4

REPORT INFORMATION
  Report Type: Spontaneous
  Country: CA (occurrence: CA)
  Receive Date: 20191109
  Receipt Date: 20191109
  Transmission Date: 20200122
  Serious: Yes (Death, Other)
  Sender: FDA-Public Use
  Company Number: CA-TEVA-2019-CA-1131759

PATIENT
  Age: 71 Year
  Sex: Female

DRUGS (6)
  1. CLINDAMYCIN HYDROCHLORIDE. [Suspect]
     Active Substance: CLINDAMYCIN HYDROCHLORIDE
     Indication: ENDOCARDITIS PROPHYLAXIS
     Route: 065
  2. CLINDAMYCIN HYDROCHLORIDE. [Suspect]
     Active Substance: CLINDAMYCIN HYDROCHLORIDE
     Indication: DENTAL CARE
     Route: 065
  3. ERYTHROMYCIN. [Suspect]
     Active Substance: ERYTHROMYCIN
     Indication: ENDOCARDITIS PROPHYLAXIS
     Route: 065
  4. CLINDAMYCIN HYDROCHLORIDE. [Suspect]
     Active Substance: CLINDAMYCIN HYDROCHLORIDE
     Indication: ANTIBIOTIC PROPHYLAXIS
     Route: 065
  5. ERYTHROMYCIN. [Suspect]
     Active Substance: ERYTHROMYCIN
     Indication: ANTIBIOTIC PROPHYLAXIS
     Route: 065
  6. ERYTHROMYCIN. [Suspect]
     Active Substance: ERYTHROMYCIN
     Indication: DENTAL CARE
     Route: 065

REACTIONS (1)
  - Clostridium difficile colitis [Fatal]
